FAERS Safety Report 7681016-9 (Version None)
Quarter: 2011Q3

REPORT INFORMATION
  Report Type: 
  Country: None (occurrence: None)
  Receive Date: 20110812
  Receipt Date: 20110803
  Transmission Date: 20111222
  Serious: Yes (Death, Life-Threatening)
  Sender: FDA-Public Use
  Company Number: US-JNJFOC-20110706901

PATIENT
  Sex: Male
  Weight: 51.26 kg

DRUGS (15)
  1. IBUPROFEN [Suspect]
     Indication: OSTEOARTHRITIS
     Route: 048
     Dates: start: 20110607, end: 20110708
  2. ATENOLOL [Concomitant]
     Dates: start: 19980101
  3. VARDENAFIL HYDROCHLORIDE (LEVITRA) [Concomitant]
     Dates: start: 20010101
  4. INDAPAMIDE [Concomitant]
     Dates: start: 20010101
  5. LORATADINE [Concomitant]
     Dates: start: 20060101
  6. IBUPROFEN [Suspect]
     Indication: RHEUMATOID ARTHRITIS
     Route: 048
     Dates: start: 20110607, end: 20110708
  7. NEXIUM [Concomitant]
     Indication: GASTROINTESTINAL DISORDER THERAPY
     Dates: start: 20110607
  8. ROSUVASTATIN [Concomitant]
     Dates: start: 20110401
  9. TERBINAFINE HCL [Concomitant]
     Dates: start: 20060101
  10. AMLODIPINE [Concomitant]
     Dates: start: 19980101
  11. TERAZOSIN HCL [Concomitant]
     Dates: start: 20090101
  12. ACETYLSALICYLIC ACID SRT [Concomitant]
     Dates: start: 20000101
  13. POTASSIUM CHLORIDE [Concomitant]
     Dates: start: 19980101
  14. FLUNISOLIDE [Concomitant]
     Dates: start: 20060101
  15. ALLOPURINOL [Concomitant]
     Dates: start: 20060101

REACTIONS (3)
  - CARDIAC ARREST [None]
  - ARTERIOSCLEROSIS CORONARY ARTERY [None]
  - HYPERTENSIVE HEART DISEASE [None]
